FAERS Safety Report 5049362-5 (Version None)
Quarter: 2006Q3

REPORT INFORMATION
  Report Type: 
  Country: None (occurrence: None)
  Receive Date: 20060712
  Receipt Date: 20060619
  Transmission Date: 20061208
  Serious: Yes (Hospitalization)
  Sender: FDA-Public Use
  Company Number: JP-JPN-A200602148

PATIENT
  Age: 38 Year
  Sex: Female
  Weight: 59 kg

DRUGS (5)
  1. PAXIL [Suspect]
     Indication: DEPRESSION
     Dosage: 10MG SEE DOSAGE TEXT
     Route: 048
     Dates: start: 20060529, end: 20060617
  2. UNKNOWN DRUG [Concomitant]
     Route: 048
  3. MEILAX [Concomitant]
     Indication: DEPRESSION
     Dosage: 1MG PER DAY
     Route: 048
     Dates: start: 20060529, end: 20060611
  4. GASMOTIN [Concomitant]
     Route: 048
  5. MEILAX [Concomitant]
     Dosage: 2MG PER DAY
     Route: 048
     Dates: start: 20060612, end: 20060617

REACTIONS (6)
  - DEPRESSED LEVEL OF CONSCIOUSNESS [None]
  - DRUG TOXICITY [None]
  - INTENTIONAL OVERDOSE [None]
  - IRRITABILITY [None]
  - SOMNOLENCE [None]
  - SUICIDE ATTEMPT [None]
